FAERS Safety Report 6176331-4 (Version None)
Quarter: 2009Q2

REPORT INFORMATION
  Report Type: 
  Country: None (occurrence: None)
  Receive Date: 20090501
  Receipt Date: 20080805
  Transmission Date: 20091009
  Serious: Yes (Hospitalization, Other)
  Sender: FDA-Public Use
  Company Number: FR-ALEXION-A200800182

PATIENT

DRUGS (27)
  1. SOLIRIS [Suspect]
     Indication: HAEMOLYTIC URAEMIC SYNDROME
     Dosage: 900 MG, SINGLE
     Route: 042
     Dates: start: 20080708, end: 20080708
  2. SOLIRIS [Suspect]
     Dosage: 900 MG, SINGLE
     Route: 042
     Dates: start: 20080715, end: 20080715
  3. SOLIRIS [Suspect]
     Dosage: 900 MG, SINGLE
     Route: 042
     Dates: start: 20080724, end: 20080724
  4. SOLIRIS [Suspect]
     Dosage: 900 MG, SINGLE
     Route: 042
     Dates: start: 20080731, end: 20080731
  5. LUTENYL [Suspect]
     Route: 048
     Dates: end: 20080723
  6. AMLODIPINE BESYLATE [Suspect]
     Indication: HYPERTENSION
     Dosage: 5 MG, QD
     Dates: start: 20080630, end: 20080704
  7. AMLODIPINE BESYLATE [Suspect]
     Dosage: 10 MG, QD
     Dates: start: 20080704, end: 20080723
  8. BACTRIM FORTE /00086101/ [Suspect]
     Dosage: UNK, HALF QD
     Route: 048
  9. BACTRIM FORTE /00086101/ [Suspect]
     Dosage: 4 QD
     Route: 048
     Dates: start: 20080616, end: 20080715
  10. RAPAMUNE [Concomitant]
     Indication: PROPHYLAXIS AGAINST TRANSPLANT REJECTION
     Dosage: 2 MG, QD
     Route: 048
  11. RAPAMUNE [Concomitant]
     Dosage: 3 MG, QD
     Route: 048
     Dates: start: 20080604, end: 20080618
  12. RAPAMUNE [Concomitant]
     Dosage: 4 MG, QD
     Dates: start: 20080618
  13. MYFORTIC /01275101/ [Concomitant]
     Indication: PROPHYLAXIS AGAINST TRANSPLANT REJECTION
     Dosage: 720 MG, BID
  14. CORTANCYL [Concomitant]
     Indication: PROPHYLAXIS AGAINST TRANSPLANT REJECTION
     Dosage: 60 MG, QD
     Route: 048
     Dates: end: 20080723
  15. CORTANCYL [Concomitant]
     Dosage: 30 MG, QD
     Route: 048
     Dates: start: 20080723
  16. TAHOR [Concomitant]
     Indication: HYPERCHOLESTEROLAEMIA
     Dosage: 40 UNK, QD
     Route: 048
     Dates: start: 20080530
  17. DEROXAT [Concomitant]
     Dosage: 20 MG, QD
     Route: 048
  18. INEXIUM /01479302/ [Concomitant]
     Dosage: 20 UNK, QD
     Route: 048
     Dates: start: 20080611
  19. SODIUM BICARBONATE [Concomitant]
     Indication: ACIDOSIS
     Dosage: 4 G, QD
     Route: 048
     Dates: end: 20080715
  20. SODIUM BICARBONATE [Concomitant]
     Dosage: 6 G, QD
     Route: 048
     Dates: start: 20080715
  21. ARANESP [Concomitant]
     Indication: ANAEMIA
     Dosage: 60 UG, WEEKLY
     Route: 058
  22. CIPROFLOXACIN HCL [Concomitant]
     Indication: PROPHYLAXIS
     Dosage: 500 MG, QD
     Route: 048
     Dates: start: 20080708, end: 20080715
  23. ROVALCYTE                          /01542201/ [Concomitant]
     Indication: ORAL CANDIDIASIS
     Dosage: 450/ 1 EVERY 2 DAYS
     Route: 048
     Dates: start: 20080702
  24. STILNOX                            /00914901/ [Concomitant]
     Dosage: 1, QD
     Route: 048
  25. KALEORID [Concomitant]
     Dosage: 100 UNK, QD
     Dates: start: 20080715
  26. MENACTRA [Concomitant]
     Indication: IMMUNISATION
     Dosage: UNK, SINGLE
     Dates: start: 20080704, end: 20080704
  27. COTRIMOXAZOLE [Suspect]

REACTIONS (5)
  - ANAEMIA [None]
  - HAEMOGLOBIN DECREASED [None]
  - HEADACHE [None]
  - METRORRHAGIA [None]
  - OEDEMA [None]
